FAERS Safety Report 19836068 (Version 1)
Quarter: 2021Q3

REPORT INFORMATION
  Report Type: Report from Study
  Country: None (occurrence: GR)
  Receive Date: 20210915
  Receipt Date: 20210915
  Transmission Date: 20211014
  Serious: Yes (Other)
  Sender: FDA-Public Use
  Company Number: GR-UNICHEM PHARMACEUTICALS (USA) INC-UCM202109-000806

PATIENT
  Age: 24 Year
  Sex: Male

DRUGS (2)
  1. RISPERIDONE. [Suspect]
     Active Substance: RISPERIDONE
     Indication: PRODUCT USED FOR UNKNOWN INDICATION
     Dosage: UNKNOWN
  2. DIVALPROEX SODIUM. [Suspect]
     Active Substance: DIVALPROEX SODIUM
     Indication: PRODUCT USED FOR UNKNOWN INDICATION
     Dosage: UNKNOWN

REACTIONS (2)
  - Systemic lupus erythematosus [Recovered/Resolved]
  - Pleural effusion [Recovered/Resolved]
